FAERS Safety Report 7537442-1 (Version None)
Quarter: 2011Q2

REPORT INFORMATION
  Report Type: 
  Country: None (occurrence: None)
  Receive Date: 20110608
  Receipt Date: 20110608
  Transmission Date: 20111010
  Serious: No
  Sender: FDA-Public Use
  Company Number: None

PATIENT
  Age: 28 Year
  Sex: Female
  Weight: 99.7913 kg

DRUGS (1)
  1. MIRENA [Suspect]
     Indication: CONTRACEPTION
     Dates: start: 20100113, end: 20110601

REACTIONS (5)
  - MENORRHAGIA [None]
  - SYSTEMIC LUPUS ERYTHEMATOSUS [None]
  - BACK PAIN [None]
  - FATIGUE [None]
  - IRRITABILITY [None]
